FAERS Safety Report 11553346 (Version 1)
Quarter: 2015Q3

REPORT INFORMATION
  Report Type: Spontaneous
  Country: US (occurrence: None)
  Receive Date: 20150924
  Receipt Date: 20150924
  Transmission Date: 20151125
  Serious: Yes (Hospitalization)
  Sender: FDA-Public Use
  Company Number: None

PATIENT
  Age: 67 Year
  Sex: Female
  Weight: 43 kg

DRUGS (12)
  1. ACTHAR [Suspect]
     Active Substance: CORTICOTROPIN
     Indication: PRODUCT USED FOR UNKNOWN INDICATION
     Route: 058
     Dates: start: 20150627, end: 20150814
  2. LIPITOR [Concomitant]
     Active Substance: ATORVASTATIN CALCIUM
  3. KEPPRA [Concomitant]
     Active Substance: LEVETIRACETAM
  4. NEXIUM [Concomitant]
     Active Substance: ESOMEPRAZOLE MAGNESIUM
  5. BUMETANIDE. [Concomitant]
     Active Substance: BUMETANIDE
  6. EPOGEN [Concomitant]
     Active Substance: ERYTHROPOIETIN
  7. CARAFATE [Concomitant]
     Active Substance: SUCRALFATE
  8. TUTHSA FENOFIBRIC ACID [Concomitant]
  9. LIDOCAINE-PRILOCAINE [Concomitant]
     Active Substance: LIDOCAINE\PRILOCAINE
  10. LOPERAMIDE [Concomitant]
     Active Substance: LOPERAMIDE
  11. MULTIVITAMIN [Concomitant]
     Active Substance: VITAMINS
  12. MIDODRINE [Concomitant]
     Active Substance: MIDODRINE

REACTIONS (2)
  - Decreased appetite [None]
  - Depression [None]

NARRATIVE: CASE EVENT DATE: 20150814
